FAERS Safety Report 5952137-3 (Version None)
Quarter: 2008Q4

REPORT INFORMATION
  Report Type: 
  Country: None (occurrence: None)
  Receive Date: 20081113
  Receipt Date: 20080617
  Transmission Date: 20090506
  Serious: No
  Sender: FDA-Public Use
  Company Number: A0733416A

PATIENT
  Age: 81 Year
  Sex: Male

DRUGS (16)
  1. COREG [Suspect]
     Dosage: 6.25MG TWICE PER DAY
     Route: 048
     Dates: start: 20070101, end: 20070401
  2. REQUIP [Suspect]
     Indication: RESTLESS LEGS SYNDROME
     Dosage: .5MG PER DAY
     Route: 048
     Dates: start: 20080201
  3. LEVOTHYROXINE SODIUM [Concomitant]
  4. OXYGEN [Concomitant]
  5. SPIRONOLACTONE [Concomitant]
  6. FUROSEMIDE [Concomitant]
  7. UNKNOWN MEDICATION [Concomitant]
  8. KLOR-CON [Concomitant]
  9. DIGITEK [Concomitant]
  10. LANOXIN [Concomitant]
  11. COZAAR [Concomitant]
  12. PLAVIX [Concomitant]
  13. COUMADIN [Concomitant]
  14. FISH OIL [Concomitant]
  15. DULCOLAX [Concomitant]
  16. CENTRUM SILVER [Concomitant]

REACTIONS (3)
  - FATIGUE [None]
  - GAIT DISTURBANCE [None]
  - JOINT SWELLING [None]
